FAERS Safety Report 7551044-2 (Version None)
Quarter: 2011Q2

REPORT INFORMATION
  Report Type: 
  Country: None (occurrence: None)
  Receive Date: 20110616
  Receipt Date: 20090930
  Transmission Date: 20111010
  Serious: Yes (Hospitalization, Other)
  Sender: FDA-Public Use
  Company Number: US-BAYER-200934729NA

PATIENT
  Age: 54 Year
  Sex: Male
  Weight: 88.6 kg

DRUGS (14)
  1. FELODIPINE [Concomitant]
     Indication: HYPERTENSION
     Dosage: 10 MG, QD
     Route: 048
  2. ATENOLOL [Concomitant]
     Indication: HYPERTENSION
     Dosage: 100 MG, QD
     Route: 048
  3. DIGOXIN [Concomitant]
     Dosage: 0.25 MG, QD
     Route: 048
  4. VASOPRESSIN [Concomitant]
     Dosage: TITRATED UNITS
     Dates: start: 20050331, end: 20050331
  5. HEPARIN [Concomitant]
     Dosage: 30,000 UNITS FOLLOWED BY 20,000 UNITS
     Route: 042
     Dates: start: 20050331, end: 20050331
  6. INSULIN [Concomitant]
     Dosage: 5 UNITS
     Route: 042
     Dates: start: 20050331, end: 20050331
  7. LISINOPRIL [Concomitant]
     Indication: HYPERTENSION
     Dosage: 40 MG, QD
     Route: 048
  8. HEPARIN [Concomitant]
     Dosage: 10,000 THEN 30,000 UNITS PUMP
     Dates: start: 20050331, end: 20050331
  9. PROTAMINE SULFATE [Concomitant]
     Dosage: 450MG
     Route: 042
     Dates: start: 20050331, end: 20050331
  10. MANNITOL [Concomitant]
     Dosage: 25MG
     Route: 042
     Dates: start: 20050331, end: 20050331
  11. DOPAMINE HCL [Concomitant]
     Dosage: DRIP, TITRATRED MCG PER KILOGRAM PER MINUTE
     Route: 042
     Dates: start: 20050331, end: 20050331
  12. TRASYLOL [Suspect]
     Indication: CORONARY ARTERY BYPASS
     Dosage: 200 ML LOADING DOSE FOLLOWED BY 50 ML PER HOUR; 200 ML PUMP
     Route: 042
     Dates: start: 20050331, end: 20050331
  13. SIMVASTATIN [Concomitant]
     Indication: HYPERLIPIDAEMIA
     Dosage: 80 MG, HS
     Route: 048
  14. HYDROCHLOROTHIAZIDE [Concomitant]
     Indication: HYPERTENSION
     Dosage: 12.5 MG, QD
     Route: 048

REACTIONS (9)
  - ANXIETY [None]
  - UNEVALUABLE EVENT [None]
  - ANHEDONIA [None]
  - PAIN [None]
  - DEPRESSION [None]
  - FEAR [None]
  - RENAL FAILURE [None]
  - CEREBROVASCULAR ACCIDENT [None]
  - INJURY [None]
